FAERS Safety Report 8222948-2 (Version None)
Quarter: 2012Q1

REPORT INFORMATION
  Report Type: 
  Country: None (occurrence: None)
  Receive Date: 20120320
  Receipt Date: 20120314
  Transmission Date: 20120608
  Serious: Yes (Other)
  Sender: FDA-Public Use
  Company Number: PHEH2011US03550

PATIENT
  Sex: Male
  Weight: 102.4 kg

DRUGS (1)
  1. GILENYA [Suspect]
     Indication: MULTIPLE SCLEROSIS
     Dosage: 0.5 MG/ DAILY
     Route: 048
     Dates: start: 20110902, end: 20111101

REACTIONS (4)
  - ABNORMAL BEHAVIOUR [None]
  - VOMITING [None]
  - NAUSEA [None]
  - HEADACHE [None]
